FAERS Safety Report 6455764-2 (Version None)
Quarter: 2009Q4

REPORT INFORMATION
  Report Type: 
  Country: None (occurrence: None)
  Receive Date: 20091125
  Receipt Date: 20090827
  Transmission Date: 20100525
  Serious: No
  Sender: FDA-Public Use
  Company Number: US-ABBOTT-09P-163-0594071-00

PATIENT
  Sex: Male
  Weight: 77.18 kg

DRUGS (5)
  1. SIMCOR [Suspect]
     Indication: BLOOD TRIGLYCERIDES INCREASED
     Dosage: 500/20 MG AT NIGHT
     Dates: start: 20090826
  2. SIMCOR [Suspect]
     Indication: BLOOD CHOLESTEROL ABNORMAL
  3. SIMCOR [Suspect]
     Indication: LOW DENSITY LIPOPROTEIN INCREASED
  4. TEKTURNA [Concomitant]
     Indication: DRUG USE FOR UNKNOWN INDICATION
  5. GLUCOSAMINE [Concomitant]
     Indication: DRUG USE FOR UNKNOWN INDICATION

REACTIONS (1)
  - BACK PAIN [None]
